FAERS Safety Report 7425101-5 (Version None)
Quarter: 2011Q2

REPORT INFORMATION
  Report Type: 
  Country: None (occurrence: None)
  Receive Date: 20110420
  Receipt Date: 20110411
  Transmission Date: 20111010
  Serious: Yes (Hospitalization)
  Sender: FDA-Public Use
  Company Number: US-BIOGENIDEC-2010BI041012

PATIENT
  Age: 49 Year
  Sex: Female
  Weight: 61 kg

DRUGS (2)
  1. AVONEX [Suspect]
     Indication: MULTIPLE SCLEROSIS
     Route: 030
     Dates: start: 20090715
  2. ARMOUR [Concomitant]
     Indication: HYPOTHYROIDISM
     Route: 048
     Dates: start: 20030101

REACTIONS (7)
  - POOR QUALITY SLEEP [None]
  - LATEX ALLERGY [None]
  - HYPOTENSION [None]
  - STRESS [None]
  - OSTEOPOROSIS [None]
  - MULTIPLE SCLEROSIS RELAPSE [None]
  - HEART RATE DECREASED [None]
